FAERS Safety Report 16852303 (Version 2)
Quarter: 2019Q4

REPORT INFORMATION
  Report Type: Spontaneous
  Country: US (occurrence: US)
  Receive Date: 20190925
  Receipt Date: 20191008
  Transmission Date: 20200122
  Serious: Yes (Other)
  Sender: FDA-Public Use
  Company Number: US-ASTRAZENECA-2019SF23974

PATIENT
  Age: 55 Year
  Sex: Female

DRUGS (6)
  1. BYDUREON [Suspect]
     Active Substance: EXENATIDE
     Indication: WEIGHT ABNORMAL
     Dosage: 2.0MG UNKNOWN
     Route: 058
     Dates: start: 2017
  2. BYDUREON [Suspect]
     Active Substance: EXENATIDE
     Indication: BLOOD GLUCOSE INCREASED
     Dosage: 2.0MG UNKNOWN
     Route: 058
     Dates: start: 201902
  3. LANTUS [Concomitant]
     Active Substance: INSULIN GLARGINE
  4. INSULIN [Concomitant]
     Active Substance: INSULIN NOS
  5. BYDUREON [Suspect]
     Active Substance: EXENATIDE
     Indication: WEIGHT ABNORMAL
     Dosage: 2.0MG UNKNOWN
     Route: 058
     Dates: start: 201902
  6. BYDUREON [Suspect]
     Active Substance: EXENATIDE
     Indication: BLOOD GLUCOSE INCREASED
     Dosage: 2.0MG UNKNOWN
     Route: 058
     Dates: start: 2017

REACTIONS (10)
  - Incorrect dose administered [Unknown]
  - Injection site mass [Recovered/Resolved]
  - Injection site haemorrhage [Recovered/Resolved]
  - Injection site pain [Recovered/Resolved]
  - Device leakage [Unknown]
  - Blood glucose increased [Recovering/Resolving]
  - Weight increased [Unknown]
  - Therapy cessation [Unknown]
  - Ill-defined disorder [Unknown]
  - Weight decreased [Unknown]

NARRATIVE: CASE EVENT DATE: 2017
